FAERS Safety Report 19819426 (Version 1)
Quarter: 2021Q3

REPORT INFORMATION
  Report Type: Report from Study
  Country: None (occurrence: CA)
  Receive Date: 20210913
  Receipt Date: 20210913
  Transmission Date: 20211014
  Serious: Yes (Other)
  Sender: FDA-Public Use
  Company Number: CA-ABBVIE-21K-028-4052545-00

PATIENT
  Age: 67 Year
  Sex: Male
  Weight: 86 kg

DRUGS (76)
  1. ACYCLOVIR. [Concomitant]
     Active Substance: ACYCLOVIR
     Dosage: SUSPENSION
     Dates: start: 20210804, end: 20210805
  2. SEPTRA [Concomitant]
     Active Substance: SULFAMETHOXAZOLE\TRIMETHOPRIM
     Indication: PRODUCT USED FOR UNKNOWN INDICATION
     Dates: start: 20190227, end: 20210802
  3. AMLODIPINE [Concomitant]
     Active Substance: AMLODIPINE BESYLATE
     Indication: PRODUCT USED FOR UNKNOWN INDICATION
     Dates: start: 20191218, end: 20210710
  4. SODIUM CHLORIDE. [Concomitant]
     Active Substance: SODIUM CHLORIDE
     Indication: PRODUCT USED FOR UNKNOWN INDICATION
     Dosage: 0.9% BOLUS
     Dates: start: 20210707, end: 20210707
  5. SODIUM CHLORIDE. [Concomitant]
     Active Substance: SODIUM CHLORIDE
     Dosage: 0.9% BOLUS
     Dates: start: 20210727, end: 20210727
  6. SENNA [Concomitant]
     Active Substance: SENNA LEAF\SENNOSIDES\SENNOSIDES A AND B
     Indication: PRODUCT USED FOR UNKNOWN INDICATION
     Dates: start: 20210707, end: 20210707
  7. HYDRALAZINE  IN NACL 0.9% 50ML [Concomitant]
     Indication: PRODUCT USED FOR UNKNOWN INDICATION
     Dosage: 10 MG
     Dates: start: 20210729, end: 20210729
  8. VENETOCLAX. [Suspect]
     Active Substance: VENETOCLAX
     Route: 048
     Dates: start: 20210713, end: 20210719
  9. COVERSYL [Concomitant]
     Active Substance: PERINDOPRIL
     Indication: PRODUCT USED FOR UNKNOWN INDICATION
     Dates: start: 20191113, end: 20210803
  10. GRASTOFIL [Concomitant]
     Active Substance: FILGRASTIM
     Dates: start: 20210726, end: 20210728
  11. LACTATED RINGERS SOLUTION [Concomitant]
     Active Substance: CALCIUM CHLORIDE\POTASSIUM CHLORIDE\SODIUM CHLORIDE\SODIUM LACTATE
     Dosage: BOLUS
     Dates: start: 20210805, end: 20210805
  12. POTASSIUM CHLORIDE (K?ELIXIR) [Concomitant]
     Indication: PRODUCT USED FOR UNKNOWN INDICATION
     Dates: start: 20210729, end: 20210729
  13. NACL [Concomitant]
     Active Substance: SODIUM CHLORIDE
     Indication: PRODUCT USED FOR UNKNOWN INDICATION
     Dosage: 0.9% FLUSH
     Dates: start: 20210726, end: 20210726
  14. GRASTOFIL [Concomitant]
     Active Substance: FILGRASTIM
     Indication: PRODUCT USED FOR UNKNOWN INDICATION
     Dates: start: 20210715, end: 20210715
  15. POTASSIUM CHLORIDE (K?ELIXIR) [Concomitant]
     Dates: start: 20210804, end: 20210804
  16. MEROPENEM. [Concomitant]
     Active Substance: MEROPENEM
     Indication: PRODUCT USED FOR UNKNOWN INDICATION
     Dates: start: 20210805, end: 20210806
  17. DEXTROSE. [Concomitant]
     Active Substance: DEXTROSE
     Indication: PRODUCT USED FOR UNKNOWN INDICATION
     Dates: start: 20210805, end: 20210806
  18. RANITIDINE HCL [Concomitant]
     Active Substance: RANITIDINE HYDROCHLORIDE
     Indication: PRODUCT USED FOR UNKNOWN INDICATION
     Dates: start: 20210803, end: 20210805
  19. SODIUM BICARBONATE. [Concomitant]
     Active Substance: SODIUM BICARBONATE
     Indication: PRODUCT USED FOR UNKNOWN INDICATION
     Dates: start: 20210727, end: 20210730
  20. SOLU?MEDROL [Concomitant]
     Active Substance: METHYLPREDNISOLONE SODIUM SUCCINATE
     Indication: PRODUCT USED FOR UNKNOWN INDICATION
     Dosage: 125MG/2ML
     Dates: start: 20210727, end: 20210727
  21. ALBUMIN [Concomitant]
     Active Substance: ALBUMIN HUMAN
     Indication: PRODUCT USED FOR UNKNOWN INDICATION
     Dates: start: 20210805, end: 20210805
  22. POTASSIUM CHLORIDE. [Concomitant]
     Active Substance: POTASSIUM CHLORIDE
     Dates: start: 20210802, end: 20210802
  23. ISOVUE 370 [Concomitant]
     Active Substance: IOPAMIDOL
     Dates: start: 20210729, end: 20210729
  24. ACYCLOVIR. [Concomitant]
     Active Substance: ACYCLOVIR
     Indication: PRODUCT USED FOR UNKNOWN INDICATION
     Dates: start: 20190227, end: 20210803
  25. TRAZODONE [Concomitant]
     Active Substance: TRAZODONE HYDROCHLORIDE
     Indication: PRODUCT USED FOR UNKNOWN INDICATION
     Dates: start: 20210427, end: 20210731
  26. ALLOPURINOL. [Concomitant]
     Active Substance: ALLOPURINOL
     Indication: PRODUCT USED FOR UNKNOWN INDICATION
     Dates: start: 20210623, end: 20210805
  27. AMLODIPINE [Concomitant]
     Active Substance: AMLODIPINE BESYLATE
     Dates: start: 20210728, end: 20210728
  28. AMLODIPINE [Concomitant]
     Active Substance: AMLODIPINE BESYLATE
     Dates: start: 20210729, end: 20210804
  29. POLYETHYLENE GLYCOL [Concomitant]
     Active Substance: POLYETHYLENE GLYCOLS
     Indication: PRODUCT USED FOR UNKNOWN INDICATION
     Dates: start: 20210707, end: 20210707
  30. GRASTOFIL [Concomitant]
     Active Substance: FILGRASTIM
     Dates: start: 20210720, end: 20210721
  31. NOREPINEPHRINE (LEVOPHED) IN 0.9% NACL [Concomitant]
     Indication: PRODUCT USED FOR UNKNOWN INDICATION
     Dates: start: 20210805, end: 20210806
  32. FUROSEMIDE  IN NACL 0.9% 10ML [Concomitant]
     Indication: PRODUCT USED FOR UNKNOWN INDICATION
     Dosage: 40 MG
     Dates: start: 20210804, end: 20210804
  33. TAZOCIN [Concomitant]
     Active Substance: PIPERACILLIN SODIUM\TAZOBACTAM SODIUM
     Indication: PRODUCT USED FOR UNKNOWN INDICATION
     Dates: start: 20210725, end: 20210805
  34. VENETOCLAX. [Suspect]
     Active Substance: VENETOCLAX
     Indication: CHRONIC LYMPHOCYTIC LEUKAEMIA
     Route: 048
     Dates: start: 20210706, end: 20210712
  35. CHLORTHALIDONE. [Concomitant]
     Active Substance: CHLORTHALIDONE
     Indication: PRODUCT USED FOR UNKNOWN INDICATION
     Dates: start: 20210202, end: 20210727
  36. AMLODIPINE [Concomitant]
     Active Substance: AMLODIPINE BESYLATE
     Dates: start: 20210726, end: 20210726
  37. RASBURICASE IN NACL 0.9% [Concomitant]
     Indication: PRODUCT USED FOR UNKNOWN INDICATION
     Dosage: 50 ML
     Dates: start: 20210705, end: 20210705
  38. POLYETHYLENE GLYCOL [Concomitant]
     Active Substance: POLYETHYLENE GLYCOLS
     Dates: start: 20210713, end: 20210713
  39. MIDAZOLAM. [Concomitant]
     Active Substance: MIDAZOLAM
     Indication: PRODUCT USED FOR UNKNOWN INDICATION
     Dates: start: 20210806, end: 20210806
  40. LACTATED RINGERS SOLUTION [Concomitant]
     Active Substance: CALCIUM CHLORIDE\POTASSIUM CHLORIDE\SODIUM CHLORIDE\SODIUM LACTATE
     Indication: PRODUCT USED FOR UNKNOWN INDICATION
     Dosage: BOLUS
     Dates: start: 20210725, end: 20210726
  41. CASPOFUNGIN  IN NACL 0.9% 250ML [Concomitant]
     Dates: start: 20210805, end: 20210805
  42. RIFAXIMIN. [Concomitant]
     Active Substance: RIFAXIMIN
     Indication: PRODUCT USED FOR UNKNOWN INDICATION
     Dates: start: 20210804, end: 20210804
  43. PERIDEX [Concomitant]
     Active Substance: CHLORHEXIDINE GLUCONATE
     Indication: PRODUCT USED FOR UNKNOWN INDICATION
     Dosage: 0.12% SOLUTION
     Dates: start: 20210804, end: 20210804
  44. NACL [Concomitant]
     Active Substance: SODIUM CHLORIDE
     Dosage: 0.9% FLUSH
     Dates: start: 20210729, end: 20210729
  45. POTASSIUM CHLORIDE. [Concomitant]
     Active Substance: POTASSIUM CHLORIDE
     Indication: PRODUCT USED FOR UNKNOWN INDICATION
     Dates: start: 20210801, end: 20210801
  46. VENETOCLAX. [Suspect]
     Active Substance: VENETOCLAX
     Route: 048
     Dates: start: 20210728, end: 20210730
  47. VENETOCLAX. [Suspect]
     Active Substance: VENETOCLAX
     Route: 048
     Dates: start: 20210731, end: 20210804
  48. SODIUM CHLORIDE. [Concomitant]
     Active Substance: SODIUM CHLORIDE
     Dosage: 0.9% BOLUS
     Dates: start: 20210728, end: 20210728
  49. ALUMINIUM HYDROXIDE [Concomitant]
     Active Substance: ALUMINUM HYDROXIDE
     Indication: PRODUCT USED FOR UNKNOWN INDICATION
     Dates: start: 20210707, end: 20210710
  50. TAZOCIN IN 0.9% NACL 100ML [Concomitant]
     Indication: PRODUCT USED FOR UNKNOWN INDICATION
     Dosage: 4.5 G
     Dates: start: 20210804, end: 20210805
  51. SPIRONOLACTONE. [Concomitant]
     Active Substance: SPIRONOLACTONE
     Indication: PRODUCT USED FOR UNKNOWN INDICATION
     Dates: start: 20210804, end: 20210806
  52. ISOVUE 370 [Concomitant]
     Active Substance: IOPAMIDOL
     Indication: PRODUCT USED FOR UNKNOWN INDICATION
     Dates: start: 20210726, end: 20210726
  53. SOLU?MEDROL IN NACL 0.9% 50ML [Concomitant]
     Indication: PRODUCT USED FOR UNKNOWN INDICATION
     Dosage: 125 MG
     Dates: start: 20210728, end: 20210731
  54. IMBRUVICA [Concomitant]
     Active Substance: IBRUTINIB
     Indication: PRODUCT USED FOR UNKNOWN INDICATION
     Dates: start: 20210220, end: 20210720
  55. SODIUM CHLORIDE. [Concomitant]
     Active Substance: SODIUM CHLORIDE
     Dosage: 0.9% BOLUS
     Dates: start: 20210725, end: 20210725
  56. SODIUM CHLORIDE. [Concomitant]
     Active Substance: SODIUM CHLORIDE
     Dosage: 0.9% BOLUS
     Dates: start: 20210731, end: 20210731
  57. PROCHLORPERAZINE. [Concomitant]
     Active Substance: PROCHLORPERAZINE
     Indication: PRODUCT USED FOR UNKNOWN INDICATION
     Dates: start: 20210706, end: 20210706
  58. PHYTONADIONE (VITAMIN K1) [Concomitant]
     Indication: PRODUCT USED FOR UNKNOWN INDICATION
     Dates: start: 20210803, end: 20210803
  59. VENETOCLAX. [Suspect]
     Active Substance: VENETOCLAX
     Route: 048
     Dates: start: 20210720, end: 20210727
  60. METOPROLOL. [Concomitant]
     Active Substance: METOPROLOL
     Indication: PRODUCT USED FOR UNKNOWN INDICATION
     Dates: start: 20210709, end: 20210714
  61. METOPROLOL. [Concomitant]
     Active Substance: METOPROLOL
     Dates: start: 20210715, end: 20210804
  62. AMLODIPINE [Concomitant]
     Active Substance: AMLODIPINE BESYLATE
     Dates: start: 20210727, end: 20210727
  63. SODIUM CHLORIDE. [Concomitant]
     Active Substance: SODIUM CHLORIDE
     Dosage: 0.9% BOLUS
     Dates: start: 20210729, end: 20210729
  64. RASBURICASE IN NACL 0.9% [Concomitant]
     Dates: start: 20210728, end: 20210728
  65. PROCHLORPERAZINE. [Concomitant]
     Active Substance: PROCHLORPERAZINE
     Dates: start: 20210726, end: 20210726
  66. POTASSIUM CHLORIDE (K?ELIXIR) [Concomitant]
     Dates: start: 20210731, end: 20210731
  67. POTASSIUM CHLORIDE (K?ELIXIR) [Concomitant]
     Dates: start: 20210805, end: 20210805
  68. CASPOFUNGIN  IN NACL 0.9% 250ML [Concomitant]
     Indication: PRODUCT USED FOR UNKNOWN INDICATION
     Dosage: 70MG
     Dates: start: 20210804, end: 20210804
  69. METOLAZONE. [Concomitant]
     Active Substance: METOLAZONE
     Indication: PRODUCT USED FOR UNKNOWN INDICATION
     Dates: start: 20210804, end: 20210804
  70. LACTULOSE. [Concomitant]
     Active Substance: LACTULOSE
     Indication: PRODUCT USED FOR UNKNOWN INDICATION
     Dosage: 10G/15ML
     Dates: start: 20210801, end: 20210805
  71. SODIUM BICARBONATE. [Concomitant]
     Active Substance: SODIUM BICARBONATE
     Dates: start: 20210731, end: 20210801
  72. TERAZOSIN [Concomitant]
     Active Substance: TERAZOSIN HYDROCHLORIDE
     Indication: PRODUCT USED FOR UNKNOWN INDICATION
     Dates: start: 20210729, end: 20210729
  73. TERAZOSIN [Concomitant]
     Active Substance: TERAZOSIN HYDROCHLORIDE
     Dates: start: 20210730, end: 20210805
  74. FIBRINOGEN [Concomitant]
     Active Substance: FIBRINOGEN HUMAN
     Indication: PRODUCT USED FOR UNKNOWN INDICATION
     Dates: start: 20210730, end: 20210730
  75. HYDRALAZINE [Concomitant]
     Active Substance: HYDRALAZINE HYDROCHLORIDE
     Indication: PRODUCT USED FOR UNKNOWN INDICATION
     Dates: start: 20210729, end: 20210729
  76. HYDRALAZINE [Concomitant]
     Active Substance: HYDRALAZINE HYDROCHLORIDE
     Dates: start: 20210804, end: 20210804

REACTIONS (1)
  - Hyperbilirubinaemia [Recovered/Resolved]

NARRATIVE: CASE EVENT DATE: 20210726
